FAERS Safety Report 10832048 (Version 1)
Quarter: 2015Q1

REPORT INFORMATION
  Report Type: Report from Study
  Country: US (occurrence: US)
  Receive Date: 20150219
  Receipt Date: 20150219
  Transmission Date: 20150721
  Serious: Yes (Hospitalization, Other)
  Sender: FDA-Public Use
  Company Number: US-BRISTOL-MYERS SQUIBB COMPANY-BMS-2015-008754

PATIENT
  Age: 15 Year
  Sex: Male
  Weight: 76 kg

DRUGS (9)
  1. CRIZOTINIB [Concomitant]
     Active Substance: CRIZOTINIB
     Indication: ANAPLASTIC LARGE CELL LYMPHOMA T- AND NULL-CELL TYPES
     Dosage: 165 MG/M2, BID
     Route: 048
     Dates: start: 20131211
  2. CYTARABINE. [Concomitant]
     Active Substance: CYTARABINE
     Indication: ANAPLASTIC LARGE CELL LYMPHOMA T- AND NULL-CELL TYPES
     Dosage: 1 DF, UNK
     Route: 065
     Dates: start: 20131206
  3. DOXORUBICIN HCL [Concomitant]
     Active Substance: DOXORUBICIN HYDROCHLORIDE
     Indication: ANAPLASTIC LARGE CELL LYMPHOMA T- AND NULL-CELL TYPES
     Dosage: 25 MG/M2, UNK
     Route: 042
     Dates: start: 20131211, end: 20140406
  4. CYCLOPHOSPHAMIDE. [Concomitant]
     Active Substance: CYCLOPHOSPHAMIDE
     Indication: ANAPLASTIC LARGE CELL LYMPHOMA T- AND NULL-CELL TYPES
     Dosage: 200 MG/M2, BID
     Route: 042
     Dates: start: 20131206, end: 20140406
  5. IFOSFAMIDE. [Concomitant]
     Active Substance: IFOSFAMIDE
     Indication: ANAPLASTIC LARGE CELL LYMPHOMA T- AND NULL-CELL TYPES
     Dosage: 800 MG/M2, UNK
     Route: 042
     Dates: start: 20131211, end: 20140316
  6. HYDROCORTISONE. [Concomitant]
     Active Substance: HYDROCORTISONE
     Indication: ANAPLASTIC LARGE-CELL LYMPHOMA
     Dosage: 1 MG, UNK
     Route: 065
     Dates: start: 20131206, end: 20131206
  7. ETOPOSIDE PHOSPHATE [Suspect]
     Active Substance: ETOPOSIDE PHOSPHATE
     Indication: ANAPLASTIC LARGE CELL LYMPHOMA T- AND NULL-CELL TYPES
     Dosage: 100 MG/M2, UNK
     Route: 042
     Dates: start: 20131211, end: 20140316
  8. METHOTREXATE [Concomitant]
     Active Substance: METHOTREXATE
     Indication: ANAPLASTIC LARGE CELL LYMPHOMA T- AND NULL-CELL TYPES
     Dosage: 1 MG/M2, UNK
     Route: 042
     Dates: start: 20131206
  9. DEXAMETHASONE. [Concomitant]
     Active Substance: DEXAMETHASONE
     Indication: ANAPLASTIC LARGE CELL LYMPHOMA T- AND NULL-CELL TYPES
     Dosage: 5 MG/M2, UNK
     Route: 048
     Dates: start: 20131206

REACTIONS (9)
  - Febrile neutropenia [Recovered/Resolved]
  - Electrocardiogram QT prolonged [Recovered/Resolved]
  - Dehydration [Recovered/Resolved]
  - Hypoalbuminaemia [Recovered/Resolved]
  - White blood cell count decreased [Recovered/Resolved]
  - Lung infection [Recovered/Resolved]
  - Stomatitis [Recovered/Resolved]
  - Embolism [Recovered/Resolved]
  - Platelet count decreased [Recovered/Resolved]

NARRATIVE: CASE EVENT DATE: 20140411
